FAERS Safety Report 20709211 (Version 1)
Quarter: 2022Q2

REPORT INFORMATION
  Report Type: Spontaneous
  Country: TR (occurrence: TR)
  Receive Date: 20220414
  Receipt Date: 20220414
  Transmission Date: 20220720
  Serious: Yes (Other)
  Sender: FDA-Public Use
  Company Number: TR-NOVARTISPH-NVSC2022TR083693

PATIENT
  Age: 7 Year
  Sex: Male

DRUGS (1)
  1. TEGRETOL [Suspect]
     Active Substance: CARBAMAZEPINE
     Indication: Seizure
     Dosage: 25 ML, QD (TOTAL (12.5 ML IN THE MORNING AT 9 AM AND 12.5 ML IN THE NIGHT AT 9 PM), STARTED 2 YEARS
     Route: 065

REACTIONS (4)
  - Infection [Recovered/Resolved]
  - Seizure [Unknown]
  - Abdominal pain upper [Recovered/Resolved]
  - Product supply issue [Unknown]
